FAERS Safety Report 5346704-8 (Version None)
Quarter: 2007Q2

REPORT INFORMATION
  Report Type: 
  Country: None (occurrence: None)
  Receive Date: 20070604
  Receipt Date: 20070522
  Transmission Date: 20071010
  Serious: Yes (Death)
  Sender: FDA-Public Use
  Company Number: 2007JP002118

PATIENT
  Sex: Male

DRUGS (4)
  1. FUNGUARD(MICAFUNGIN) INJECTION [Suspect]
     Indication: ASPERGILLOSIS
     Dosage: SEE IMAGE
     Route: 041
  2. AMPHOTERICIN FORMULATION UNKNOWN [Concomitant]
  3. STEROID FORMULATION UNKNOWN [Concomitant]
  4. IMMUNOSUPPRESSIVE AGENTS FORMULATION UNKNOWN [Concomitant]

REACTIONS (3)
  - ASPERGILLOSIS [None]
  - DISEASE RECURRENCE [None]
  - HEPATIC FAILURE [None]
